FAERS Safety Report 10408761 (Version 1)
Quarter: 2014Q3

REPORT INFORMATION
  Report Type: Spontaneous
  Country: CN (occurrence: None)
  Receive Date: 20140822
  Receipt Date: 20140822
  Transmission Date: 20150326
  Serious: Yes (Death, Other)
  Sender: FDA-Public Use
  Company Number: 2014CN01116

PATIENT

DRUGS (1)
  1. LAMIVUDINE(LAMIVUDINE)TABLET [Suspect]
     Active Substance: LAMIVUDINE
     Indication: HEPATITIS B

REACTIONS (3)
  - Hepatitis B [None]
  - Disease recurrence [None]
  - Hepatic failure [None]
